FAERS Safety Report 14544681 (Version 2)
Quarter: 2018Q2

REPORT INFORMATION
  Report Type: Spontaneous
  Country: US (occurrence: US)
  Receive Date: 20180217
  Receipt Date: 20180515
  Transmission Date: 20180711
  Serious: Yes (Hospitalization)
  Sender: FDA-Public Use
  Company Number: US-JNJFOC-20180206677

PATIENT
  Age: 68 Year
  Sex: Female

DRUGS (44)
  1. XARELTO [Suspect]
     Active Substance: RIVAROXABAN
     Indication: THROMBOSIS PROPHYLAXIS
     Route: 048
     Dates: start: 20151211, end: 20151212
  2. XARELTO [Suspect]
     Active Substance: RIVAROXABAN
     Indication: DEEP VEIN THROMBOSIS
     Route: 048
     Dates: start: 20151223, end: 20151224
  3. XARELTO [Suspect]
     Active Substance: RIVAROXABAN
     Indication: MENISCUS OPERATION
     Route: 048
     Dates: start: 20151226, end: 20160111
  4. XARELTO [Suspect]
     Active Substance: RIVAROXABAN
     Indication: THROMBOSIS PROPHYLAXIS
     Route: 048
     Dates: start: 20151211, end: 20151212
  5. XARELTO [Suspect]
     Active Substance: RIVAROXABAN
     Indication: THROMBOSIS PROPHYLAXIS
     Route: 048
     Dates: start: 20151223, end: 20151224
  6. XARELTO [Suspect]
     Active Substance: RIVAROXABAN
     Indication: PULMONARY EMBOLISM
     Route: 048
     Dates: start: 20151223, end: 20151224
  7. XARELTO [Suspect]
     Active Substance: RIVAROXABAN
     Indication: THROMBOSIS PROPHYLAXIS
     Route: 048
     Dates: start: 20151226, end: 20160111
  8. XARELTO [Suspect]
     Active Substance: RIVAROXABAN
     Indication: DEEP VEIN THROMBOSIS
     Route: 048
     Dates: start: 20151226, end: 20160111
  9. XARELTO [Suspect]
     Active Substance: RIVAROXABAN
     Indication: ARTHROSCOPY
     Route: 048
     Dates: start: 20160112, end: 201602
  10. XARELTO [Suspect]
     Active Substance: RIVAROXABAN
     Indication: MENISCUS OPERATION
     Route: 048
     Dates: start: 20160212, end: 20160512
  11. XARELTO [Suspect]
     Active Substance: RIVAROXABAN
     Indication: ARTHROSCOPY
     Route: 048
     Dates: start: 20151211, end: 20151212
  12. XARELTO [Suspect]
     Active Substance: RIVAROXABAN
     Indication: DEEP VEIN THROMBOSIS
     Route: 048
     Dates: start: 20151211, end: 20151212
  13. XARELTO [Suspect]
     Active Substance: RIVAROXABAN
     Indication: JOINT DEBRIDEMENT
     Route: 048
     Dates: start: 20160112, end: 201602
  14. XARELTO [Suspect]
     Active Substance: RIVAROXABAN
     Indication: PULMONARY EMBOLISM
     Route: 048
     Dates: start: 201602, end: 20160211
  15. XARELTO [Suspect]
     Active Substance: RIVAROXABAN
     Indication: DEEP VEIN THROMBOSIS
     Route: 048
     Dates: start: 201602, end: 20160211
  16. XARELTO [Suspect]
     Active Substance: RIVAROXABAN
     Indication: ARTHROSCOPY
     Route: 048
     Dates: start: 20160212, end: 20160512
  17. XARELTO [Suspect]
     Active Substance: RIVAROXABAN
     Indication: PULMONARY EMBOLISM
     Route: 048
     Dates: start: 20160212, end: 20160512
  18. XARELTO [Suspect]
     Active Substance: RIVAROXABAN
     Indication: PULMONARY EMBOLISM
     Route: 048
     Dates: start: 20151211, end: 20151212
  19. XARELTO [Suspect]
     Active Substance: RIVAROXABAN
     Indication: MENISCUS OPERATION
     Route: 048
     Dates: start: 20151223, end: 20151224
  20. XARELTO [Suspect]
     Active Substance: RIVAROXABAN
     Indication: THROMBOSIS PROPHYLAXIS
     Route: 048
     Dates: start: 20160112, end: 201602
  21. XARELTO [Suspect]
     Active Substance: RIVAROXABAN
     Indication: MENISCUS OPERATION
     Route: 048
     Dates: start: 20160112, end: 201602
  22. XARELTO [Suspect]
     Active Substance: RIVAROXABAN
     Indication: JOINT DEBRIDEMENT
     Route: 048
     Dates: start: 201602, end: 20160211
  23. XARELTO [Suspect]
     Active Substance: RIVAROXABAN
     Indication: JOINT DEBRIDEMENT
     Route: 048
     Dates: start: 20160212, end: 20160512
  24. TYLENOL WITH CODEINE [Suspect]
     Active Substance: ACETAMINOPHEN\CODEINE PHOSPHATE
     Indication: PRODUCT USED FOR UNKNOWN INDICATION
     Route: 065
  25. XARELTO [Suspect]
     Active Substance: RIVAROXABAN
     Indication: THROMBOSIS PROPHYLAXIS
     Route: 048
     Dates: start: 20151223, end: 20151224
  26. XARELTO [Suspect]
     Active Substance: RIVAROXABAN
     Indication: ARTHROSCOPY
     Route: 048
     Dates: start: 201602, end: 20160211
  27. XARELTO [Suspect]
     Active Substance: RIVAROXABAN
     Indication: THROMBOSIS PROPHYLAXIS
     Route: 048
     Dates: start: 201602, end: 20160211
  28. XARELTO [Suspect]
     Active Substance: RIVAROXABAN
     Indication: THROMBOSIS PROPHYLAXIS
     Route: 048
     Dates: start: 20160212, end: 20160512
  29. XARELTO [Suspect]
     Active Substance: RIVAROXABAN
     Indication: THROMBOSIS PROPHYLAXIS
     Route: 048
     Dates: start: 20160212, end: 20160512
  30. ASPIRIN. [Suspect]
     Active Substance: ASPIRIN
     Indication: PRODUCT USED FOR UNKNOWN INDICATION
     Route: 065
     Dates: end: 201602
  31. XARELTO [Suspect]
     Active Substance: RIVAROXABAN
     Indication: MENISCUS OPERATION
     Route: 048
     Dates: start: 20151211, end: 20151212
  32. XARELTO [Suspect]
     Active Substance: RIVAROXABAN
     Indication: ARTHROSCOPY
     Route: 048
     Dates: start: 20151223, end: 20151224
  33. XARELTO [Suspect]
     Active Substance: RIVAROXABAN
     Indication: PULMONARY EMBOLISM
     Route: 048
     Dates: start: 20151226, end: 20160111
  34. XARELTO [Suspect]
     Active Substance: RIVAROXABAN
     Indication: JOINT DEBRIDEMENT
     Route: 048
     Dates: start: 20151226, end: 20160111
  35. XARELTO [Suspect]
     Active Substance: RIVAROXABAN
     Indication: JOINT DEBRIDEMENT
     Route: 048
     Dates: start: 20151211, end: 20151212
  36. XARELTO [Suspect]
     Active Substance: RIVAROXABAN
     Indication: JOINT DEBRIDEMENT
     Route: 048
     Dates: start: 20151223, end: 20151224
  37. XARELTO [Suspect]
     Active Substance: RIVAROXABAN
     Indication: THROMBOSIS PROPHYLAXIS
     Route: 048
     Dates: start: 20151226, end: 20160111
  38. XARELTO [Suspect]
     Active Substance: RIVAROXABAN
     Indication: THROMBOSIS PROPHYLAXIS
     Route: 048
     Dates: start: 20160112, end: 201602
  39. XARELTO [Suspect]
     Active Substance: RIVAROXABAN
     Indication: DEEP VEIN THROMBOSIS
     Route: 048
     Dates: start: 20160112, end: 201602
  40. XARELTO [Suspect]
     Active Substance: RIVAROXABAN
     Indication: THROMBOSIS PROPHYLAXIS
     Route: 048
     Dates: start: 201602, end: 20160211
  41. XARELTO [Suspect]
     Active Substance: RIVAROXABAN
     Indication: MENISCUS OPERATION
     Route: 048
     Dates: start: 201602, end: 20160211
  42. XARELTO [Suspect]
     Active Substance: RIVAROXABAN
     Indication: DEEP VEIN THROMBOSIS
     Route: 048
     Dates: start: 20160212, end: 20160512
  43. XARELTO [Suspect]
     Active Substance: RIVAROXABAN
     Indication: ARTHROSCOPY
     Route: 048
     Dates: start: 20151226, end: 20160111
  44. XARELTO [Suspect]
     Active Substance: RIVAROXABAN
     Indication: PULMONARY EMBOLISM
     Route: 048
     Dates: start: 20160112, end: 201602

REACTIONS (1)
  - Gastric ulcer haemorrhage [Unknown]

NARRATIVE: CASE EVENT DATE: 20160205
